FAERS Safety Report 5939015-0 (Version None)
Quarter: 2008Q4

REPORT INFORMATION
  Report Type: 
  Country: None (occurrence: None)
  Receive Date: 20081103
  Receipt Date: 20081016
  Transmission Date: 20090506
  Serious: No
  Sender: FDA-Public Use
  Company Number: US-BAYER-200814117BCC

PATIENT
  Age: 81 Year
  Sex: Female
  Weight: 75 kg

DRUGS (4)
  1. ALEVE [Suspect]
     Indication: EXOSTOSIS
     Dosage: TOTAL DAILY DOSE: 220 MG  UNIT DOSE: 220 MG
     Route: 048
     Dates: start: 20081015
  2. BENICAR [Concomitant]
  3. LIPITOR [Concomitant]
  4. ACIPHEX [Concomitant]

REACTIONS (2)
  - ARTHRALGIA [None]
  - PAIN IN EXTREMITY [None]
